FAERS Safety Report 8580159-5 (Version None)
Quarter: 2012Q2

REPORT INFORMATION
  Report Type: 
  Country: None (occurrence: None)
  Receive Date: 20120423
  Receipt Date: 20100402
  Transmission Date: 20120825
  Serious: Yes (Other)
  Sender: FDA-Public Use
  Company Number: PHHY2010US20823

PATIENT
  Sex: Male
  Weight: 60.7 kg

DRUGS (1)
  1. EXJADE [Suspect]
     Indication: IRON OVERLOAD
     Dosage: 1125 MG, QD, ORAL
     Route: 048
     Dates: start: 20091013, end: 20091204

REACTIONS (1)
  - RENAL FAILURE [None]
